FAERS Safety Report 12630697 (Version 1)
Quarter: 2016Q3

REPORT INFORMATION
  Report Type: Spontaneous
  Country: US (occurrence: US)
  Receive Date: 20160808
  Receipt Date: 20160808
  Transmission Date: 20161109
  Serious: Yes (Hospitalization, Disabling)
  Sender: FDA-Public Use
  Company Number: US-ELI_LILLY_AND_COMPANY-US201607013079

PATIENT
  Sex: Female

DRUGS (5)
  1. HUMALOG MIX75/25 [Suspect]
     Active Substance: INSULIN LISPRO
     Indication: TYPE 2 DIABETES MELLITUS
     Dosage: 125 U, EACH MORNING
     Dates: start: 201603
  2. PREDNISONE. [Suspect]
     Active Substance: PREDNISONE
     Indication: PRODUCT USED FOR UNKNOWN INDICATION
     Dosage: UNK, UNKNOWN
     Route: 065
  3. HUMALOG [Suspect]
     Active Substance: INSULIN LISPRO
     Indication: TYPE 2 DIABETES MELLITUS
     Dosage: UNK, OTHER
     Route: 065
     Dates: start: 201604
  4. HUMALOG [Suspect]
     Active Substance: INSULIN LISPRO
     Indication: ADRENAL INSUFFICIENCY
     Dosage: UNK, OTHER
     Route: 065
  5. HUMALOG MIX75/25 [Suspect]
     Active Substance: INSULIN LISPRO
     Indication: ADRENAL INSUFFICIENCY
     Dosage: 64 U, EACH EVENING

REACTIONS (6)
  - Sepsis [Unknown]
  - Blood glucose increased [Unknown]
  - Dizziness [Unknown]
  - Osteonecrosis [Unknown]
  - Wound infection [Unknown]
  - Headache [Unknown]

NARRATIVE: CASE EVENT DATE: 201603
